FAERS Safety Report 4819189-5 (Version None)
Quarter: 2005Q4

REPORT INFORMATION
  Report Type: 
  Country: None (occurrence: None)
  Receive Date: 20051103
  Receipt Date: 20051028
  Transmission Date: 20060501
  Serious: Yes (Other)
  Sender: FDA-Public Use
  Company Number: CA-GLAXOSMITHKLINE-A0580358A

PATIENT
  Sex: Female

DRUGS (2)
  1. LAMICTAL [Suspect]
     Indication: BIPOLAR DISORDER
     Route: 048
  2. UNSPECIFIED MEDICATION [Concomitant]

REACTIONS (2)
  - BLOOD GLUCOSE DECREASED [None]
  - LOSS OF CONSCIOUSNESS [None]
